FAERS Safety Report 13389342 (Version 1)
Quarter: 2017Q1

REPORT INFORMATION
  Report Type: Spontaneous
  Country: AU (occurrence: AU)
  Receive Date: 20170330
  Receipt Date: 20170330
  Transmission Date: 20170429
  Serious: Yes (Other)
  Sender: FDA-Public Use
  Company Number: AU-PFIZER INC-2017130124

PATIENT
  Age: 15 Year
  Sex: Female

DRUGS (1)
  1. PRISTIQ EXTENDED-RELEASE [Suspect]
     Active Substance: DESVENLAFAXINE SUCCINATE
     Dosage: UNK

REACTIONS (7)
  - Dizziness [Unknown]
  - Vomiting [Unknown]
  - Overdose [Unknown]
  - Mydriasis [Unknown]
  - Malaise [Unknown]
  - Gastrointestinal disorder [Unknown]
  - Visual impairment [Unknown]
